FAERS Safety Report 5486057-8 (Version None)
Quarter: 2007Q4

REPORT INFORMATION
  Report Type: 
  Country: None (occurrence: None)
  Receive Date: 20071015
  Receipt Date: 20071003
  Transmission Date: 20080405
  Serious: Yes (Disabling, Other)
  Sender: FDA-Public Use
  Company Number: NO-PFIZER INC-2004213462NO

PATIENT
  Sex: Female

DRUGS (1)
  1. PROSTIN VR SOLUTION, STERILE [Suspect]
     Indication: FALLOT'S TETRALOGY
     Dosage: TEXT:600 NG/KG/MIN
     Route: 042

REACTIONS (4)
  - CONVULSION [None]
  - LEUKOENCEPHALOPATHY [None]
  - MEDICATION ERROR [None]
  - OVERDOSE [None]
